FAERS Safety Report 6672105-6 (Version None)
Quarter: 2010Q2

REPORT INFORMATION
  Report Type: 
  Country: None (occurrence: None)
  Receive Date: 20100407
  Receipt Date: 20100407
  Transmission Date: 20101027
  Serious: Yes (Life-Threatening)
  Sender: FDA-Public Use
  Company Number: None

PATIENT
  Age: 76 Year
  Sex: Female
  Weight: 32.659 kg

DRUGS (3)
  1. VISIPAQUE 320 [Suspect]
     Indication: ABDOMINAL PAIN
     Dosage: 99 ML 1 DOSE IV BOLUS
     Route: 040
     Dates: start: 20100125, end: 20100125
  2. GASTROGRAFIN [Concomitant]
  3. NSS [Concomitant]

REACTIONS (5)
  - ANAPHYLACTIC REACTION [None]
  - ELECTROCARDIOGRAM CHANGE [None]
  - HYPOTENSION [None]
  - HYPOXIA [None]
  - NO THERAPEUTIC RESPONSE [None]
